FAERS Safety Report 7906147-7 (Version None)
Quarter: 2011Q4

REPORT INFORMATION
  Report Type: 
  Country: None (occurrence: None)
  Receive Date: 20111109
  Receipt Date: 20111109
  Transmission Date: 20120403
  Serious: Yes (Life-Threatening, Hospitalization)
  Sender: FDA-Public Use
  Company Number: None

PATIENT
  Age: 35 Year
  Sex: Female
  Weight: 43.5453 kg

DRUGS (2)
  1. REMICADE [Suspect]
     Indication: RHEUMATOID ARTHRITIS
     Dosage: 200 MG Q 6 WKS IV INFUSION 250MG
     Route: 042
     Dates: start: 20110914
  2. REMICADE [Suspect]
     Indication: RHEUMATOID ARTHRITIS
     Dosage: 200 MG Q 6 WKS IV INFUSION 250MG
     Route: 042
     Dates: start: 20110728

REACTIONS (10)
  - COLD SWEAT [None]
  - DIARRHOEA [None]
  - DEHYDRATION [None]
  - GALLBLADDER DISORDER [None]
  - VOMITING [None]
  - DRY MOUTH [None]
  - PYREXIA [None]
  - RENAL FAILURE ACUTE [None]
  - HEPATIC FAILURE [None]
  - LETHARGY [None]
